FAERS Safety Report 7747427-8 (Version None)
Quarter: 2011Q3

REPORT INFORMATION
  Report Type: 
  Country: None (occurrence: None)
  Receive Date: 20110913
  Receipt Date: 20110905
  Transmission Date: 20111222
  Serious: Yes (Other)
  Sender: FDA-Public Use
  Company Number: JP-VIIV HEALTHCARE LIMITED-B0746114A

PATIENT
  Sex: Female
  Weight: 51 kg

DRUGS (11)
  1. ZIAGEN [Suspect]
     Indication: HIV INFECTION
     Dosage: 600MG PER DAY
     Route: 048
     Dates: start: 20091202
  2. BETAMETHASONE [Concomitant]
     Indication: PREMATURE LABOUR
     Dosage: 12MG PER DAY
     Route: 030
     Dates: start: 20100311, end: 20100312
  3. ZITHROMAX [Concomitant]
     Dosage: 1200MG PER DAY
     Route: 048
     Dates: start: 20091205
  4. VALTREX [Concomitant]
     Indication: HERPES VIRUS INFECTION
     Dosage: 1000MG PER DAY
     Route: 048
     Dates: start: 20091130
  5. EPIVIR [Suspect]
     Indication: HIV INFECTION
     Dosage: 300MG PER DAY
     Route: 048
     Dates: start: 20091128
  6. KALETRA [Concomitant]
     Indication: HIV INFECTION
     Dosage: 4IUAX PER DAY
     Route: 048
     Dates: start: 20091128
  7. UNKNOWN [Concomitant]
     Indication: THREATENED LABOUR
     Route: 042
     Dates: start: 20100311, end: 20100324
  8. UNKNOWN [Concomitant]
     Route: 042
  9. RETROVIR [Suspect]
     Indication: HIV INFECTION
     Route: 042
     Dates: start: 20100324
  10. UNKNOWN [Concomitant]
     Indication: TOXOPLASMOSIS
     Dosage: 1IUAX PER DAY
     Route: 048
     Dates: start: 20091112
  11. ZITHROMAX [Concomitant]
     Indication: TOXOPLASMOSIS
     Dosage: 1200MG PER DAY
     Route: 048
     Dates: start: 20091112

REACTIONS (3)
  - PREMATURE LABOUR [None]
  - SMALL FOR DATES BABY [None]
  - MATERNAL EXPOSURE DURING PREGNANCY [None]
